FAERS Safety Report 22639063 (Version 18)
Quarter: 2024Q3

REPORT INFORMATION
  Report Type: Spontaneous
  Country: CA (occurrence: CA)
  Receive Date: 20230626
  Receipt Date: 20240806
  Transmission Date: 20241017
  Serious: Yes (Other)
  Sender: CELLTRION
  Company Number: CA-CELLTRION INC.-2023CA009656

PATIENT

DRUGS (23)
  1. INFLECTRA [Suspect]
     Active Substance: INFLIXIMAB-DYYB
     Indication: Crohn^s disease
     Dosage: 1 DF- WEEK 0 HOSPITAL START
     Route: 042
     Dates: start: 20230331, end: 20230331
  2. INFLECTRA [Suspect]
     Active Substance: INFLIXIMAB-DYYB
     Indication: Crohn^s disease
     Dosage: 300 MG (10 MG/KG), WEEK 2 AND 6
     Route: 042
     Dates: start: 20230616, end: 20230616
  3. INFLECTRA [Suspect]
     Active Substance: INFLIXIMAB-DYYB
     Dosage: 300 MG (10 MG/KG), WEEK 2 AND 6
     Route: 042
     Dates: start: 20230713
  4. INFLECTRA [Suspect]
     Active Substance: INFLIXIMAB-DYYB
     Dosage: 10 MG/KG (300 MG), AFTER 6 WEEKS (PRESCRIBED EVERY 4 WEEKS)
     Route: 042
     Dates: start: 20230824, end: 20230824
  5. INFLECTRA [Suspect]
     Active Substance: INFLIXIMAB-DYYB
     Dosage: 10 MG/KG (690 MG), REINDUCTION 0,2, 6 AND Q4 WEEKS (W0)
     Route: 042
     Dates: start: 20231005
  6. INFLECTRA [Suspect]
     Active Substance: INFLIXIMAB-DYYB
     Dosage: 10 MG/KG, REINDUCTION 0,2, 6 AND Q4 WEEKS
     Route: 042
     Dates: start: 20240111
  7. INFLECTRA [Suspect]
     Active Substance: INFLIXIMAB-DYYB
     Dosage: 10 MG/KG (850 MG), REINDUCTION 0,2, 6 AND Q4 WEEKS
     Route: 042
     Dates: start: 20240208
  8. INFLECTRA [Suspect]
     Active Substance: INFLIXIMAB-DYYB
     Dosage: 10 MG/KG (850 MG), REINDUCTION 0,2, 6 AND Q4 WEEKS
     Route: 042
     Dates: start: 20240307
  9. INFLECTRA [Suspect]
     Active Substance: INFLIXIMAB-DYYB
     Dosage: 10 MG/KG (850 MG), REINDUCTION 0,2, 6 AND Q4 WEEKS
     Route: 042
     Dates: start: 20240307
  10. INFLECTRA [Suspect]
     Active Substance: INFLIXIMAB-DYYB
     Dosage: 10 MG/KG (860MG), AFTER 4 WEEKS
     Route: 042
     Dates: start: 20240404
  11. INFLECTRA [Suspect]
     Active Substance: INFLIXIMAB-DYYB
     Dosage: 10 MG/KG (860MG), AFTER 4 WEEKS
     Route: 042
     Dates: start: 20240503
  12. INFLECTRA [Suspect]
     Active Substance: INFLIXIMAB-DYYB
     Dosage: 10 MG/KG (860 MG), EVERY 4 WEEKS
     Route: 042
     Dates: start: 20240531
  13. INFLECTRA [Suspect]
     Active Substance: INFLIXIMAB-DYYB
     Dosage: 10 MG/KG (860 MG), EVERY 4 WEEKS
     Route: 042
     Dates: start: 20240531
  14. INFLECTRA [Suspect]
     Active Substance: INFLIXIMAB-DYYB
     Dosage: 930 MG, AFTER 4 WEEKS
     Route: 042
     Dates: start: 20240628
  15. INFLECTRA [Suspect]
     Active Substance: INFLIXIMAB-DYYB
     Dosage: 930 MG, AFTER 4 WEEKS
     Route: 042
     Dates: start: 20240628
  16. INFLECTRA [Suspect]
     Active Substance: INFLIXIMAB-DYYB
     Dosage: 940 MG, EVERY 4 WEEKS
     Route: 042
     Dates: start: 20240726
  17. ACETAMINOPHEN [Concomitant]
     Active Substance: ACETAMINOPHEN
     Indication: Premedication
     Dosage: 500 MG
     Dates: start: 20240208, end: 20240208
  18. ACETAMINOPHEN [Concomitant]
     Active Substance: ACETAMINOPHEN
     Dosage: UNK
     Dates: start: 20240404, end: 20240404
  19. ACETAMINOPHEN [Concomitant]
     Active Substance: ACETAMINOPHEN
     Dosage: 500 MG
     Dates: start: 20240503, end: 20240503
  20. DIPHENHYDRAMINE [Concomitant]
     Active Substance: DIPHENHYDRAMINE
     Indication: Premedication
     Dosage: 50 MG
     Route: 048
     Dates: start: 20230616, end: 20230616
  21. DIPHENHYDRAMINE [Concomitant]
     Active Substance: DIPHENHYDRAMINE
     Dosage: 50 MG
     Dates: start: 20240208, end: 20240208
  22. DIPHENHYDRAMINE [Concomitant]
     Active Substance: DIPHENHYDRAMINE
     Dosage: UNK
     Dates: start: 20240404, end: 20240404
  23. DIPHENHYDRAMINE [Concomitant]
     Active Substance: DIPHENHYDRAMINE
     Dosage: 50 MG
     Dates: start: 20240503, end: 20240503

REACTIONS (27)
  - Condition aggravated [Recovered/Resolved]
  - Hypertension [Recovering/Resolving]
  - Clostridium difficile infection [Unknown]
  - Faecaloma [Unknown]
  - Weight increased [Not Recovered/Not Resolved]
  - Blood pressure increased [Not Recovered/Not Resolved]
  - Anal fissure [Recovered/Resolved]
  - Erythema nodosum [Recovered/Resolved]
  - Arthralgia [Recovering/Resolving]
  - Asthenia [Unknown]
  - Hiatus hernia [Unknown]
  - Anal fistula [Unknown]
  - Pelvic floor muscle weakness [Unknown]
  - Haemorrhoids [Unknown]
  - Arteriosclerosis [Unknown]
  - Degenerative bone disease [Unknown]
  - Astigmatism [Unknown]
  - Rash [Unknown]
  - Intestinal dilatation [Unknown]
  - Blood calcium decreased [Unknown]
  - Blood albumin decreased [Unknown]
  - Haemoglobin decreased [Unknown]
  - Weight increased [Not Recovered/Not Resolved]
  - Off label use [Unknown]
  - Intentional dose omission [Unknown]
  - Incorrect dose administered [Unknown]
  - Inappropriate schedule of product administration [Unknown]

NARRATIVE: CASE EVENT DATE: 20230616
